FAERS Safety Report 5216919-8 (Version None)
Quarter: 2007Q1

REPORT INFORMATION
  Report Type: 
  Country: None (occurrence: None)
  Receive Date: 20070119
  Receipt Date: 20070111
  Transmission Date: 20070707
  Serious: No
  Sender: FDA-Public Use
  Company Number: E2020-00867-SPO-CA

PATIENT
  Age: 84 Year
  Sex: Female

DRUGS (1)
  1. ARICEPT [Suspect]
     Dosage: UNKNOWN, UNKNOWN, ORAL
     Route: 048

REACTIONS (1)
  - LUPUS-LIKE SYNDROME [None]
